FAERS Safety Report 4456631-6 (Version None)
Quarter: 2004Q3

REPORT INFORMATION
  Report Type: 
  Country: None (occurrence: None)
  Receive Date: 20040920
  Receipt Date: 20040908
  Transmission Date: 20050211
  Serious: Yes (Hospitalization, Other)
  Sender: FDA-Public Use
  Company Number: HQWYE881808SEP04

PATIENT
  Age: 31 Year
  Sex: Male

DRUGS (4)
  1. ADVIL [Suspect]
     Indication: URINARY TRACT INFECTION
     Route: 048
     Dates: start: 20040503, end: 20040504
  2. NIFUROXAZIDE (NIFUROXAZIDE, ) [Suspect]
     Indication: URINARY TRACT INFECTION
     Route: 048
     Dates: start: 20040503, end: 20040504
  3. ZYRTEC [Concomitant]
  4. ... [Concomitant]

REACTIONS (5)
  - ARTHRALGIA [None]
  - BLOOD IRON DECREASED [None]
  - CHILLS [None]
  - CYTOLYTIC HEPATITIS [None]
  - TOXIC SKIN ERUPTION [None]
